FAERS Safety Report 15826165 (Version 1)
Quarter: 2019Q1

REPORT INFORMATION
  Report Type: Spontaneous
  Country: US (occurrence: US)
  Receive Date: 20190115
  Receipt Date: 20190115
  Transmission Date: 20190417
  Serious: Yes (Disabling)
  Sender: FDA-Public Use
  Company Number: None

PATIENT
  Age: 60 Year
  Sex: Female
  Weight: 90 kg

DRUGS (1)
  1. AIMOVIG [Suspect]
     Active Substance: ERENUMAB-AOOE
     Indication: MIGRAINE

REACTIONS (7)
  - Muscle spasms [None]
  - Myalgia [None]
  - Enuresis [None]
  - Hypotonia [None]
  - Loss of personal independence in daily activities [None]
  - Fatigue [None]
  - Urge incontinence [None]

NARRATIVE: CASE EVENT DATE: 20190114
